FAERS Safety Report 10148916 (Version 1)
Quarter: 2014Q2

REPORT INFORMATION
  Report Type: Spontaneous
  Country: PH (occurrence: PH)
  Receive Date: 20140502
  Receipt Date: 20140502
  Transmission Date: 20141212
  Serious: Yes (Death, Other)
  Sender: FDA-Public Use
  Company Number: PH-009507513-1404PHL014347

PATIENT
  Sex: Female

DRUGS (4)
  1. JANUMET [Suspect]
     Indication: DIABETES MELLITUS
     Dosage: 1 DF, QD IN THE MORNING
     Dates: start: 2010, end: 201403
  2. FENOFLEX [Concomitant]
  3. I-MAX [Concomitant]
  4. RIFAMPIN [Concomitant]

REACTIONS (2)
  - Diabetic complication [Fatal]
  - Tuberculosis [Fatal]
